FAERS Safety Report 4554400-X (Version None)
Quarter: 2005Q1

REPORT INFORMATION
  Report Type: 
  Country: None (occurrence: None)
  Receive Date: 20050118
  Receipt Date: 20050113
  Transmission Date: 20050727
  Serious: Yes (Life-Threatening)
  Sender: FDA-Public Use
  Company Number: US-BRISTOL-MYERS SQUIBB COMPANY-12824793

PATIENT
  Age: 43 Year
  Sex: Male
  Weight: 69 kg

DRUGS (5)
  1. EFAVIRENZ [Suspect]
     Route: 048
     Dates: start: 20040322
  2. LAMIVUDINE [Suspect]
     Route: 048
     Dates: start: 20040322
  3. TENOFOVIR [Suspect]
     Route: 048
     Dates: start: 20040322
  4. VIAGRA [Concomitant]
  5. SUDAFED 12 HOUR [Concomitant]

REACTIONS (4)
  - ALANINE AMINOTRANSFERASE INCREASED [None]
  - ASPARTATE AMINOTRANSFERASE INCREASED [None]
  - BLOOD CREATINE PHOSPHOKINASE INCREASED [None]
  - NECK PAIN [None]
